FAERS Safety Report 4673899-1 (Version None)
Quarter: 2005Q2

REPORT INFORMATION
  Report Type: 
  Country: None (occurrence: None)
  Receive Date: 20050523
  Receipt Date: 20050318
  Transmission Date: 20051028
  Serious: No
  Sender: FDA-Public Use
  Company Number: HQWYE424828MAR05

PATIENT
  Age: 22 Year
  Sex: Female
  Weight: 81.72 kg

DRUGS (3)
  1. ALAVERT D-12 (LORATADINE/PSEUDOEPHEDRINE SULFATE, TABLET, EXTENDED REL [Suspect]
     Indication: EYE PRURITUS
     Dosage: 1 TABLET 1X PER 12 HR, ORAL
     Route: 048
     Dates: start: 20050316, end: 20050316
  2. ALAVERT D-12 (LORATADINE/PSEUDOEPHEDRINE SULFATE, TABLET, EXTENDED REL [Suspect]
     Indication: LACRIMATION INCREASED
     Dosage: 1 TABLET 1X PER 12 HR, ORAL
     Route: 048
     Dates: start: 20050316, end: 20050316
  3. ALAVERT D-12 (LORATADINE/PSEUDOEPHEDRINE SULFATE, TABLET, EXTENDED REL [Suspect]
     Indication: SINUS HEADACHE
     Dosage: 1 TABLET 1X PER 12 HR, ORAL
     Route: 048
     Dates: start: 20050316, end: 20050316

REACTIONS (2)
  - DYSPNOEA [None]
  - FEELING JITTERY [None]
